FAERS Safety Report 14179050 (Version 2)
Quarter: 2018Q2

REPORT INFORMATION
  Report Type: Spontaneous
  Country: US (occurrence: US)
  Receive Date: 20171111
  Receipt Date: 20180417
  Transmission Date: 20180711
  Serious: Yes (Hospitalization, Other)
  Sender: FDA-Public Use
  Company Number: US-CIPLA (EU) LIMITED-2017US19630

PATIENT

DRUGS (10)
  1. GEMCITABINE [Suspect]
     Active Substance: GEMCITABINE\GEMCITABINE HYDROCHLORIDE
     Indication: METASTASES TO LIVER
  2. CARBOPLATIN. [Suspect]
     Active Substance: CARBOPLATIN
     Indication: METASTASES TO LIVER
     Dosage: 5 CYCLES
     Route: 065
     Dates: start: 201308
  3. CISPLATIN. [Suspect]
     Active Substance: CISPLATIN
     Indication: LUNG CARCINOMA CELL TYPE UNSPECIFIED STAGE IV
     Dosage: UNK (ONE CYCLE)
     Route: 065
     Dates: start: 2012
  4. PACLITAXEL. [Suspect]
     Active Substance: PACLITAXEL
     Indication: LUNG CARCINOMA CELL TYPE UNSPECIFIED STAGE IV
     Dosage: 80 MG/M2, ON DAYS 1, 8 AND 15 OVER THE COURSE OF 4 WEEKS
     Route: 065
  5. CARBOPLATIN. [Suspect]
     Active Substance: CARBOPLATIN
     Indication: LUNG CARCINOMA CELL TYPE UNSPECIFIED STAGE IV
     Dosage: AREA UNDER CURVE OF 6; ON DAYS 1, 8 AND 15 OVER THE COURSE OF 4 WEEKS
     Route: 065
  6. DOCETAXEL. [Suspect]
     Active Substance: DOCETAXEL
     Indication: METASTASES TO LIVER
  7. GEMCITABINE [Suspect]
     Active Substance: GEMCITABINE\GEMCITABINE HYDROCHLORIDE
     Indication: LUNG CARCINOMA CELL TYPE UNSPECIFIED STAGE IV
     Dosage: 5 CYCLES
     Route: 065
     Dates: start: 201308
  8. PACLITAXEL. [Suspect]
     Active Substance: PACLITAXEL
     Dosage: UNK (TWO CYCLES OF SINGLE-AGENT)
     Route: 065
  9. DOCETAXEL. [Suspect]
     Active Substance: DOCETAXEL
     Indication: LUNG CARCINOMA CELL TYPE UNSPECIFIED STAGE IV
     Dosage: UNK (ONE CYCLE)
     Route: 065
     Dates: start: 2012
  10. CISPLATIN. [Suspect]
     Active Substance: CISPLATIN
     Indication: METASTASES TO LIVER

REACTIONS (9)
  - Neoplasm recurrence [Unknown]
  - Toxicity to various agents [Unknown]
  - Nausea [Unknown]
  - Vomiting [Unknown]
  - Therapy partial responder [Unknown]
  - Malignant neoplasm progression [Unknown]
  - Mucosal inflammation [Unknown]
  - Dehydration [Unknown]
  - Peripheral sensory neuropathy [Unknown]

NARRATIVE: CASE EVENT DATE: 201304
